FAERS Safety Report 5739337-2 (Version None)
Quarter: 2008Q2

REPORT INFORMATION
  Report Type: 
  Country: None (occurrence: None)
  Receive Date: 20080513
  Receipt Date: 20080429
  Transmission Date: 20081010
  Serious: Yes (Other)
  Sender: FDA-Public Use
  Company Number: FABR-11256

PATIENT
  Age: 38 Year
  Sex: Male
  Weight: 90 kg

DRUGS (8)
  1. FABRAZYME [Suspect]
     Indication: FABRY'S DISEASE
     Dosage: 5 MG, INTRAVENOUS; 90 MG, Q2W, INTRAVENOUS
     Route: 042
     Dates: start: 20030729, end: 20051003
  2. FABRAZYME [Suspect]
     Indication: FABRY'S DISEASE
     Dosage: 5 MG, INTRAVENOUS; 90 MG, Q2W, INTRAVENOUS
     Route: 042
     Dates: start: 20060517
  3. FABRAZYME [Suspect]
  4. LORAZEPAM [Concomitant]
  5. BENADRYL [Concomitant]
  6. OXYCONTIN [Concomitant]
  7. TOPAMAX [Concomitant]
  8. PROZAC [Concomitant]

REACTIONS (11)
  - ANTIBODY TEST POSITIVE [None]
  - CHEST DISCOMFORT [None]
  - EYELID OEDEMA [None]
  - FATIGUE [None]
  - FEELING JITTERY [None]
  - INFUSION RELATED REACTION [None]
  - RASH MACULO-PAPULAR [None]
  - RASH PRURITIC [None]
  - THROAT IRRITATION [None]
  - TREATMENT NONCOMPLIANCE [None]
  - WHEEZING [None]
